FAERS Safety Report 25062222 (Version 1)
Quarter: 2025Q1

REPORT INFORMATION
  Report Type: Spontaneous
  Country: JP (occurrence: JP)
  Receive Date: 20250311
  Receipt Date: 20250311
  Transmission Date: 20250408
  Serious: Yes (Death)
  Sender: RECORDATI
  Company Number: JP-RECORDATI RARE DISEASE INC.-2025001495

PATIENT
  Age: 29 Year
  Sex: Female

DRUGS (4)
  1. ISTURISA [Suspect]
     Active Substance: OSILODROSTAT PHOSPHATE
     Indication: Cushing^s syndrome
     Dosage: 2 MG DAILY IN 2 INTERVALS (BID)
     Route: 048
     Dates: start: 20241024, end: 20250228
  2. METYRAPONE [Concomitant]
     Active Substance: METYRAPONE
     Indication: Product used for unknown indication
     Dosage: 300 MILLIGRAM, QID (CAPSULE)
     Route: 048
  3. CORTRIL [Concomitant]
     Active Substance: HYDROCORTISONE
     Indication: Product used for unknown indication
     Dosage: 10 MILLIGRAM, QD (TABLET)
     Route: 048
  4. DENOSUMAB [Concomitant]
     Active Substance: DENOSUMAB
     Indication: Product used for unknown indication
     Dosage: 120 MILLIGRAM, QM (INJECTION, GENETICAL RECOMBINATION)
     Route: 058

REACTIONS (2)
  - Nasal cavity cancer [Fatal]
  - Condition aggravated [Fatal]
